FAERS Safety Report 21248700 (Version 2)
Quarter: 2022Q4

REPORT INFORMATION
  Report Type: Report from Study
  Country: US (occurrence: US)
  Receive Date: 20220824
  Receipt Date: 20221123
  Transmission Date: 20230112
  Serious: Yes (Other)
  Sender: FDA-Public Use
  Company Number: US-GLAXOSMITHKLINE-US2022AMR092804

PATIENT

DRUGS (1)
  1. BELANTAMAB MAFODOTIN [Suspect]
     Active Substance: BELANTAMAB MAFODOTIN
     Indication: Product used for unknown indication
     Dosage: UNK
     Dates: start: 20220216, end: 20220713

REACTIONS (6)
  - Corneal opacity [Recovered/Resolved]
  - Blindness unilateral [Unknown]
  - Keratopathy [Unknown]
  - Visual acuity reduced [Unknown]
  - Night blindness [Unknown]
  - Sensation of foreign body [Unknown]

NARRATIVE: CASE EVENT DATE: 20220712
